FAERS Safety Report 11663994 (Version 1)
Quarter: 2015Q4

REPORT INFORMATION
  Report Type: Spontaneous
  Country: US (occurrence: None)
  Receive Date: 20151026
  Receipt Date: 20151026
  Transmission Date: 20160304
  Serious: Yes (Hospitalization)
  Sender: FDA-Public Use
  Company Number: None

PATIENT
  Age: 47 Year
  Sex: Male

DRUGS (1)
  1. NEXAVAR [Suspect]
     Active Substance: SORAFENIB
     Indication: ACUTE MYELOID LEUKAEMIA
     Dosage: 200MG    2 TABLETS (400MG) TWICE  ORAL
     Route: 048
     Dates: start: 20151009

REACTIONS (1)
  - Pyrexia [None]

NARRATIVE: CASE EVENT DATE: 20151016
